FAERS Safety Report 11678275 (Version 1)
Quarter: 2015Q4

REPORT INFORMATION
  Report Type: Spontaneous
  Country: US (occurrence: US)
  Receive Date: 20151027
  Receipt Date: 20151027
  Transmission Date: 20160304
  Serious: No
  Sender: FDA-Public Use
  Company Number: US-ELI_LILLY_AND_COMPANY-US201010002945

PATIENT
  Sex: Female
  Weight: 50.79 kg

DRUGS (3)
  1. FORTEO [Suspect]
     Active Substance: TERIPARATIDE
     Indication: OSTEOPOROSIS
     Route: 058
     Dates: start: 20090318
  2. FORTEO [Suspect]
     Active Substance: TERIPARATIDE
     Dosage: 20 UG, DAILY (1/D)
     Route: 058
  3. PROTON PUMP INHIBITORS [Concomitant]
     Active Substance: UNSPECIFIED INGREDIENT
     Indication: GASTROOESOPHAGEAL REFLUX DISEASE

REACTIONS (4)
  - Gastrooesophageal reflux disease [Recovered/Resolved]
  - Muscular weakness [Recovered/Resolved]
  - Limb discomfort [Recovered/Resolved]
  - Bone pain [Recovered/Resolved]
